FAERS Safety Report 25993693 (Version 3)
Quarter: 2025Q4

REPORT INFORMATION
  Report Type: Spontaneous
  Country: JP (occurrence: JP)
  Receive Date: 20251104
  Receipt Date: 20251224
  Transmission Date: 20260118
  Serious: Yes (Other)
  Sender: NOVARTIS
  Company Number: JP-002147023-NVSJ2025JP010588

PATIENT
  Age: 76 Year
  Sex: Male
  Weight: 67 kg

DRUGS (6)
  1. ENTRESTO [Suspect]
     Active Substance: SACUBITRIL\VALSARTAN
     Indication: Cardiac failure congestive
     Dosage: 50 MG, BID
     Route: 048
     Dates: start: 20250119
  2. ELIQUIS [Concomitant]
     Active Substance: APIXABAN
     Indication: Cerebrovascular accident prophylaxis
     Dosage: 5 MG, BID
     Route: 048
     Dates: start: 20250114
  3. SPIRONOLACTONE [Concomitant]
     Active Substance: SPIRONOLACTONE
     Indication: Cardiac failure congestive
     Dosage: 25 MG, QD
     Route: 048
     Dates: start: 20250115
  4. BISOPROLOL [Concomitant]
     Active Substance: BISOPROLOL
     Indication: Cardiac failure congestive
     Dosage: 1.25 MG, QD
     Route: 048
     Dates: start: 20250116
  5. FUROSEMIDE [Concomitant]
     Active Substance: FUROSEMIDE
     Indication: Diuretic therapy
     Dosage: 20 MG, QD
     Route: 048
     Dates: start: 20250121
  6. SAMSCA [Concomitant]
     Active Substance: TOLVAPTAN
     Indication: Diuretic therapy
     Dosage: 7.5 MG, QD
     Route: 048
     Dates: start: 20250119, end: 20250121

REACTIONS (2)
  - Cardiac amyloidosis [Not Recovered/Not Resolved]
  - N-terminal prohormone brain natriuretic peptide increased [Unknown]

NARRATIVE: CASE EVENT DATE: 20250619
